FAERS Safety Report 10290064 (Version 1)
Quarter: 2014Q3

REPORT INFORMATION
  Report Type: Spontaneous
  Country: US (occurrence: US)
  Receive Date: 20140710
  Receipt Date: 20140710
  Transmission Date: 20150326
  Serious: No
  Sender: FDA-Public Use
  Company Number: US-PFIZER INC-2014188442

PATIENT
  Sex: Female

DRUGS (1)
  1. ADVIL MIGRAINE [Suspect]
     Active Substance: IBUPROFEN
     Dosage: 200 MG, UNK

REACTIONS (1)
  - Rash generalised [Unknown]
